FAERS Safety Report 8023150-X (Version None)
Quarter: 2012Q1

REPORT INFORMATION
  Report Type: 
  Country: None (occurrence: None)
  Receive Date: 20120104
  Receipt Date: 20111222
  Transmission Date: 20120608
  Serious: Yes (Death)
  Sender: FDA-Public Use
  Company Number: US-PFIZER INC-2011308728

PATIENT
  Age: 48 Year
  Sex: Female

DRUGS (4)
  1. BUPROPION [Suspect]
  2. DILTIAZEM HCL [Suspect]
  3. NAPROXEN [Suspect]
  4. MECLIZINE HCL [Suspect]

REACTIONS (3)
  - RESPIRATORY ARREST [None]
  - COMPLETED SUICIDE [None]
  - CARDIAC ARREST [None]
